FAERS Safety Report 5563313-6 (Version None)
Quarter: 2007Q4

REPORT INFORMATION
  Report Type: 
  Country: None (occurrence: None)
  Receive Date: 20071217
  Receipt Date: 20071207
  Transmission Date: 20080405
  Serious: Yes (Other)
  Sender: FDA-Public Use
  Company Number: GB-ASTRAZENECA-2007GB02520

PATIENT
  Age: 43 Year
  Sex: Female

DRUGS (2)
  1. TAMOXIFEN CITRATE [Suspect]
     Indication: BREAST CANCER
     Route: 048
     Dates: start: 20070401
  2. HERCEPTIN [Concomitant]
     Indication: BREAST CANCER
     Dosage: 6 MG PER UNIT WEIGHT EVERY 3 WEEKS

REACTIONS (1)
  - RASH MACULO-PAPULAR [None]
